FAERS Safety Report 5075782-9 (Version None)
Quarter: 2006Q3

REPORT INFORMATION
  Report Type: 
  Country: None (occurrence: None)
  Receive Date: 20060803
  Receipt Date: 20060803
  Transmission Date: 20061208
  Serious: No
  Sender: FDA-Public Use
  Company Number: None

PATIENT
  Age: 42 Year
  Sex: Male

DRUGS (12)
  1. METHYLPHENIDATE HCL [Suspect]
     Indication: ATTENTION DEFICIT/HYPERACTIVITY DISORDER
     Dosage: 20 MG PO TID
     Route: 048
     Dates: start: 20060601, end: 20060801
  2. LANOXIN [Concomitant]
  3. LASIX [Concomitant]
  4. ALDACTONE [Concomitant]
  5. PROZAC [Concomitant]
  6. LISINOPRIL [Concomitant]
  7. POTASSIUM [Concomitant]
  8. METOPROLOL TARTRATE [Concomitant]
  9. SYNTHROID [Concomitant]
  10. LITHIUM CARBONATE [Concomitant]
  11. EFFEXOR XR [Concomitant]
  12. NAPROXEN [Concomitant]

REACTIONS (2)
  - HOMICIDAL IDEATION [None]
  - THERAPEUTIC RESPONSE UNEXPECTED WITH DRUG SUBSTITUTION [None]
